FAERS Safety Report 17403898 (Version 1)
Quarter: 2020Q1

REPORT INFORMATION
  Report Type: Spontaneous
  Country: US (occurrence: US)
  Receive Date: 20200211
  Receipt Date: 20200211
  Transmission Date: 20200409
  Serious: No
  Sender: FDA-Public Use
  Company Number: US-NEXGEN PHARMA, INC.-2080147

PATIENT
  Age: 36 Year
  Sex: Male

DRUGS (1)
  1. CHENODAL [Suspect]
     Active Substance: CHENODIOL
     Indication: LIPIDOSIS
     Route: 048
     Dates: start: 20191128

REACTIONS (3)
  - Urine output decreased [Unknown]
  - Infrequent bowel movements [Unknown]
  - Depressed mood [Unknown]
